FAERS Safety Report 22993401 (Version 2)
Quarter: 2023Q4

REPORT INFORMATION
  Report Type: Spontaneous
  Country: CN (occurrence: None)
  Receive Date: 20230927
  Receipt Date: 20231005
  Transmission Date: 20240109
  Serious: Yes (Hospitalization, Other)
  Sender: FDA-Public Use
  Company Number: CN-ROCHE-3428310

PATIENT
  Age: 76 Year
  Sex: Male

DRUGS (2)
  1. GAVRETO [Suspect]
     Active Substance: PRALSETINIB
     Indication: Lung neoplasm malignant
     Route: 048
     Dates: start: 20230601, end: 20230619
  2. GAVRETO [Suspect]
     Active Substance: PRALSETINIB
     Route: 048
     Dates: start: 20230912, end: 20230918

REACTIONS (9)
  - Gait disturbance [Recovering/Resolving]
  - Pneumonia [Recovering/Resolving]
  - Hyperhidrosis [Recovered/Resolved]
  - Hypoxia [Recovering/Resolving]
  - Asthenia [Recovering/Resolving]
  - Cough [Recovered/Resolved]
  - Dyspnoea [Recovering/Resolving]
  - Aphasia [Recovering/Resolving]
  - Drug hypersensitivity [Recovering/Resolving]

NARRATIVE: CASE EVENT DATE: 20230601
